FAERS Safety Report 23593904 (Version 1)
Quarter: 2024Q1

REPORT INFORMATION
  Report Type: Spontaneous
  Country: NO (occurrence: NO)
  Receive Date: 20240305
  Receipt Date: 20240305
  Transmission Date: 20240410
  Serious: Yes (Disabling, Other)
  Sender: FDA-Public Use
  Company Number: None

PATIENT
  Age: 61 Year
  Sex: Female

DRUGS (1)
  1. SAXENDA [Suspect]
     Active Substance: LIRAGLUTIDE
     Indication: Weight control
     Dosage: 6 MG
     Route: 058
     Dates: start: 20221001, end: 20240101

REACTIONS (1)
  - Optic atrophy [Recovering/Resolving]

NARRATIVE: CASE EVENT DATE: 20230501
